FAERS Safety Report 6727731-2 (Version None)
Quarter: 2010Q2

REPORT INFORMATION
  Report Type: 
  Country: None (occurrence: None)
  Receive Date: 20100512
  Receipt Date: 20100430
  Transmission Date: 20101027
  Serious: Yes (Hospitalization, Other)
  Sender: FDA-Public Use
  Company Number: DSJ-2010-07103

PATIENT
  Age: 72 Year
  Sex: Male

DRUGS (17)
  1. OLMETEC           (OLMESARTAN MEDOXOMIL) (TABLET) [Suspect]
     Indication: HYPERTENSIVE HEART DISEASE
     Dosage: 20 MG (20 MG, 1 IN 1 D), PER ORAL
     Route: 048
     Dates: start: 20090407, end: 20090408
  2. SPIROTONE         (SPIRONOLACTONE) [Suspect]
     Dosage: 25 MG, 1 IN 1 D, ORAL
     Route: 048
  3. INDERAL [Concomitant]
  4. TRENTAL [Concomitant]
  5. KALIMATE (SODIUM POLYSTYRENE SULFONATE) [Concomitant]
  6. SENOSIDE (SENNOSIDE A+ B CALCIUM) [Concomitant]
  7. VITAMIN B (THIAMINE HYDROCHLORIDE) [Concomitant]
  8. VIARTRIL-S (GLUCOSAMINE SULFATE) [Concomitant]
  9. DUSPHATALIN [Concomitant]
  10. LOPERAMIDE [Concomitant]
  11. XANAX [Concomitant]
  12. FERRIAN (IRON) [Concomitant]
  13. EURODIN (ESTAZOLAM) [Concomitant]
  14. PLETAL [Concomitant]
  15. COXINE (ISOSORBIDE MONONITRATE) [Concomitant]
  16. LANOXINE (DIGOXIN) [Concomitant]
  17. FOLIC ACID [Concomitant]

REACTIONS (5)
  - DIARRHOEA [None]
  - DRUG INTERACTION [None]
  - ELECTROLYTE IMBALANCE [None]
  - HYPERKALAEMIA [None]
  - RENAL IMPAIRMENT [None]
